FAERS Safety Report 4722747-X (Version None)
Quarter: 2005Q3

REPORT INFORMATION
  Report Type: 
  Country: None (occurrence: None)
  Receive Date: 20050719
  Receipt Date: 20040920
  Transmission Date: 20060218
  Serious: Yes (Hospitalization, Other)
  Sender: FDA-Public Use
  Company Number: 2004230167US

PATIENT
  Sex: Female
  Weight: 54.4 kg

DRUGS (5)
  1. CELEBREX [Suspect]
     Indication: OSTEOARTHRITIS
     Dosage: 400 MG, QD, UNKNOWN
     Route: 065
     Dates: start: 19990915, end: 20030601
  2. LASIX [Concomitant]
  3. LIPITOR [Concomitant]
  4. NORVASC [Concomitant]
  5. ATENOLOL [Concomitant]

REACTIONS (2)
  - GASTRIC HAEMORRHAGE [None]
  - ULCER [None]
